FAERS Safety Report 4838271-X (Version None)
Quarter: 2005Q4

REPORT INFORMATION
  Report Type: 
  Country: None (occurrence: None)
  Receive Date: 20051123
  Receipt Date: 20051111
  Transmission Date: 20060501
  Serious: Yes (Hospitalization, Other)
  Sender: FDA-Public Use
  Company Number: 2005155434

PATIENT
  Age: 79 Year
  Sex: Male

DRUGS (9)
  1. DOXAZOSIN MESYLATE [Suspect]
     Indication: HYPERTENSION
     Dosage: 2 MG (2 MG, ONCE DAILY), ORAL
     Route: 048
  2. SAVETENS (ATENOLOL) [Suspect]
     Indication: HYPERTENSION
     Dosage: 50 MG (50 MG, ONCE DAILY), ORAL
     Route: 048
  3. ADALAT [Concomitant]
  4. GASTROM (ECABET MONOSODIUM) [Concomitant]
  5. ALEVIATIN (PHENYTOIN) [Concomitant]
  6. MAGNESIUM OXIDE (MAGNESIUM OXIDE) [Concomitant]
  7. ZOLPIDEM TARTRATE [Concomitant]
  8. CORTRIL [Concomitant]
  9. FLORINEF [Concomitant]

REACTIONS (3)
  - BLOOD SODIUM DECREASED [None]
  - CONVULSION [None]
  - SUBDURAL HAEMATOMA [None]
